FAERS Safety Report 4540111-3 (Version None)
Quarter: 2004Q4

REPORT INFORMATION
  Report Type: 
  Country: None (occurrence: None)
  Receive Date: 20041223
  Receipt Date: 20041213
  Transmission Date: 20050328
  Serious: Yes (Other)
  Sender: FDA-Public Use
  Company Number: 2004114409

PATIENT
  Age: 77 Year
  Sex: Female
  Weight: 72.5755 kg

DRUGS (7)
  1. CELEBREX [Suspect]
     Indication: OSTEOARTHRITIS
     Dosage: 200 MG (200 MG, 1 IN 1 D), ORAL
     Route: 048
     Dates: end: 20040101
  2. AMIODARONE HCL [Suspect]
     Indication: ATRIAL FIBRILLATION
  3. FLECAINIDE (FLECAINIDE0 [Suspect]
     Indication: ATRIAL FIBRILLATION
  4. ALL OTHER THERAPEUTIC PRODUCTS (ALL OTEHR THERAPEUTIC PRODUCTS) [Suspect]
     Indication: ATRIAL FIBRILLATION
  5. ATORVASTATIN (ATORVASTATIN) [Concomitant]
  6. VALSARTAN (VALSARTAN) [Suspect]
  7. HYDROCHLOROTHIAZIDE(HYDROCHLOROTHIAZIDE0 [Suspect]

REACTIONS (4)
  - ATRIAL FIBRILLATION [None]
  - BODY HEIGHT DECREASED [None]
  - DIARRHOEA [None]
  - HEADACHE [None]
